FAERS Safety Report 6669819-0 (Version None)
Quarter: 2010Q2

REPORT INFORMATION
  Report Type: 
  Country: None (occurrence: None)
  Receive Date: 20100402
  Receipt Date: 20100317
  Transmission Date: 20101027
  Serious: Yes (Hospitalization, Other)
  Sender: FDA-Public Use
  Company Number: 006418

PATIENT
  Age: 79 Year
  Sex: Male

DRUGS (5)
  1. MACUGEN [Suspect]
     Indication: CHOROIDAL NEOVASCULARISATION
     Dates: start: 20090814
  2. MACUGEN [Suspect]
     Indication: MACULAR DEGENERATION
     Dates: start: 20090814
  3. HYALEIN (HYALURONATE SODIUM) [Concomitant]
  4. FLOMOX (CEFCAPENE PIVOXIL HYDROCHLORIDE) [Concomitant]
  5. LEVOFLOXACIN [Concomitant]

REACTIONS (1)
  - CEREBRAL INFARCTION [None]
